FAERS Safety Report 5628909-1 (Version None)
Quarter: 2008Q1

REPORT INFORMATION
  Report Type: 
  Country: None (occurrence: None)
  Receive Date: 20080213
  Receipt Date: 20080205
  Transmission Date: 20080703
  Serious: Yes (Other)
  Sender: FDA-Public Use
  Company Number: ADE# 08-019

PATIENT
  Age: 47 Year
  Sex: Female

DRUGS (1)
  1. METFORMIN HYDROCHLORIDE EXTENDED-RELEASE TABLETS, 750MG [Suspect]
     Indication: FIBROMYALGIA
     Dates: start: 20071201

REACTIONS (10)
  - ANOREXIA [None]
  - DIARRHOEA [None]
  - DRUG DISPENSING ERROR [None]
  - HYPERTENSION [None]
  - LETHARGY [None]
  - MEDICATION ERROR [None]
  - NAUSEA [None]
  - RENAL DISORDER [None]
  - VOMITING [None]
  - WRONG DRUG ADMINISTERED [None]
